FAERS Safety Report 9198428 (Version 1)
Quarter: 2013Q1

REPORT INFORMATION
  Report Type: Spontaneous
  Country: US (occurrence: None)
  Receive Date: 20130327
  Receipt Date: 20130327
  Transmission Date: 20140127
  Serious: Yes (Life-Threatening)
  Sender: FDA-Public Use
  Company Number: None

PATIENT
  Age: 63 Year
  Sex: Female
  Weight: 26.54 kg

DRUGS (2)
  1. VICTOZA [Suspect]
     Indication: TYPE 2 DIABETES MELLITUS
     Dosage: 1.8 MG DAILY SQ
     Route: 058
     Dates: start: 20101201, end: 20130101
  2. EXENATIDE [Suspect]
     Dosage: 10 UG BID SQ
     Route: 058
     Dates: start: 20080801, end: 20101201

REACTIONS (3)
  - Pancreatitis [None]
  - Pancreatic carcinoma [None]
  - Tumour necrosis [None]
